FAERS Safety Report 7719614-6 (Version None)
Quarter: 2011Q3

REPORT INFORMATION
  Report Type: 
  Country: None (occurrence: None)
  Receive Date: 20110830
  Receipt Date: 20110815
  Transmission Date: 20111222
  Serious: Yes (Hospitalization)
  Sender: FDA-Public Use
  Company Number: US-BAYER-2011-075708

PATIENT
  Age: 62 Year
  Sex: Male
  Weight: 122 kg

DRUGS (20)
  1. PANTOPRAZOLE [Concomitant]
     Dosage: UNK
     Dates: start: 20090601
  2. LEVOXYL [Concomitant]
     Dosage: UNK
     Dates: start: 20100210
  3. METOPROLOL TARTRATE [Concomitant]
     Dosage: UNK
     Dates: start: 20110618
  4. PLAVIX [Suspect]
     Indication: ISCHAEMIC HEART DISEASE PROPHYLAXIS
     Dosage: 75 MG, BID
     Route: 048
     Dates: start: 20110623
  5. GLUCOSAMINE [Concomitant]
     Dosage: UNK
     Dates: start: 20110413, end: 20110622
  6. ASPIRIN [Suspect]
     Indication: METASTATIC RENAL CELL CARCINOMA
     Dosage: 3 UNK,UNK
     Dates: start: 20090916, end: 20110614
  7. AMLODIPINE [Concomitant]
     Dosage: UNK
     Dates: start: 20091006
  8. AVANDARYL [Concomitant]
     Dosage: UNK
     Dates: start: 20080101, end: 20110622
  9. VALSARTAN [Concomitant]
     Dosage: UNK
     Dates: start: 20110618, end: 20110622
  10. TRICOR [Concomitant]
     Dosage: UNK
     Dates: start: 20080101
  11. SIMAVASTATIN [Concomitant]
     Dosage: UNK
     Dates: start: 20080101, end: 20110622
  12. CRESTOR [Concomitant]
     Dosage: UNK
     Dates: start: 20110622
  13. IMODIUM JAN [Concomitant]
     Dosage: UNK
     Dates: start: 20100501
  14. LOVENOX [Concomitant]
     Dosage: UNK
     Dates: start: 20110618, end: 20110623
  15. ASPIRIN [Suspect]
     Indication: ISCHAEMIC HEART DISEASE PROPHYLAXIS
     Dosage: 325 MG, QD
     Route: 048
     Dates: start: 20110618
  16. ADVIL LIQUI-GELS [Concomitant]
     Dosage: UNK
     Dates: start: 20091116, end: 20110622
  17. CENTRUM SILVER [Concomitant]
     Dosage: UNK
     Dates: start: 20040901
  18. VITAMIN B-12 [Concomitant]
     Dosage: UNK
     Dates: start: 20090601
  19. AMOXICILLIN [Concomitant]
     Dosage: UNK
     Dates: start: 20110615, end: 20110620
  20. AMARYL [Concomitant]
     Dosage: UNK
     Dates: start: 20110622

REACTIONS (3)
  - ANAEMIA [None]
  - ANGINA PECTORIS [None]
  - NAUSEA [None]
